FAERS Safety Report 17637238 (Version 1)
Quarter: 2020Q2

REPORT INFORMATION
  Report Type: Spontaneous
  Country: US (occurrence: US)
  Receive Date: 20200406
  Receipt Date: 20200406
  Transmission Date: 20200713
  Serious: Yes (Hospitalization)
  Sender: FDA-Public Use
  Company Number: None

PATIENT
  Age: 69 Year
  Sex: Male
  Weight: 90.45 kg

DRUGS (12)
  1. ALLOPURINOL 100MG [Concomitant]
     Active Substance: ALLOPURINOL
  2. ONDANSETRON 8MG [Concomitant]
     Active Substance: ONDANSETRON
  3. FUROSEMIDE 20MG [Concomitant]
     Active Substance: FUROSEMIDE
  4. CAPECITABINE. [Suspect]
     Active Substance: CAPECITABINE
     Indication: COLON CANCER
     Dosage: OTHER FREQUENCY:BIDX14 DAYS, 7 OFF;?
     Route: 048
     Dates: start: 20200325
  5. ATORVASTATIN 40MG [Concomitant]
     Active Substance: ATORVASTATIN
  6. PROCHLORPERAZINE 10MG [Concomitant]
  7. ALBUTEROL 2.5MG/3ML [Concomitant]
  8. BACLOFEN 10MG [Concomitant]
     Active Substance: BACLOFEN
  9. CARVEDILOL 12.5MG [Concomitant]
     Active Substance: CARVEDILOL
  10. SYMBICORT 160-4.5MCG [Concomitant]
  11. ISOSORBIDE MONONITRATE ER30MG [Concomitant]
  12. LAMICTAL ODT 100MG [Concomitant]

REACTIONS (1)
  - Coronavirus infection [None]

NARRATIVE: CASE EVENT DATE: 20200406
